FAERS Safety Report 24417519 (Version 1)
Quarter: 2024Q4

REPORT INFORMATION
  Report Type: Spontaneous
  Country: TH (occurrence: TH)
  Receive Date: 20241009
  Receipt Date: 20241009
  Transmission Date: 20250115
  Serious: Yes (Other)
  Sender: JOHNSON AND JOHNSON
  Company Number: TH-JNJFOC-20241010064

PATIENT

DRUGS (2)
  1. SIMPONI [Suspect]
     Active Substance: GOLIMUMAB
     Indication: Uveitis
     Route: 058
  2. SIMPONI [Suspect]
     Active Substance: GOLIMUMAB

REACTIONS (5)
  - Disseminated varicella zoster virus infection [Unknown]
  - Diffuse large B-cell lymphoma [Unknown]
  - Ocular lymphoma [Unknown]
  - Dermatitis psoriasiform [Unknown]
  - Off label use [Unknown]
